FAERS Safety Report 8900603 (Version 2)
Quarter: 2013Q1

REPORT INFORMATION
  Report Type: Spontaneous
  Country: US (occurrence: US)
  Receive Date: 20121109
  Receipt Date: 20130118
  Transmission Date: 20140127
  Serious: No
  Sender: FDA-Public Use
  Company Number: US-009507513-1211USA001332

PATIENT
  Sex: Female

DRUGS (1)
  1. NEXPLANON [Suspect]
     Dosage: 1 DF, UNK
     Dates: start: 20121008

REACTIONS (3)
  - Device difficult to use [Unknown]
  - Device malfunction [Unknown]
  - No adverse event [Unknown]
